FAERS Safety Report 5260377-4 (Version None)
Quarter: 2007Q1

REPORT INFORMATION
  Report Type: 
  Country: None (occurrence: None)
  Receive Date: 20070309
  Receipt Date: 20060804
  Transmission Date: 20070707
  Serious: No
  Sender: FDA-Public Use
  Company Number: US-GLAXOSMITHKLINE-A0614992A

PATIENT
  Age: 58 Year
  Sex: Female

DRUGS (5)
  1. NICORETTE (MINT) [Suspect]
  2. SYNTHROID [Concomitant]
  3. VITAMINS [Concomitant]
  4. CALCIUM [Concomitant]
  5. ALDACTAZIDE [Concomitant]

REACTIONS (1)
  - INTENTIONAL DRUG MISUSE [None]
